FAERS Safety Report 21502163 (Version 2)
Quarter: 2025Q1

REPORT INFORMATION
  Report Type: Spontaneous
  Country: HR (occurrence: HR)
  Receive Date: 20221025
  Receipt Date: 20250116
  Transmission Date: 20250409
  Serious: Yes (Other)
  Sender: MYLAN
  Company Number: HR-009507513-2203HRV008225

PATIENT
  Age: 76 Year
  Sex: Male

DRUGS (10)
  1. ROSUVASTATIN [Suspect]
     Active Substance: ROSUVASTATIN
     Indication: Product used for unknown indication
     Route: 065
  2. ROSUVASTATIN [Suspect]
     Active Substance: ROSUVASTATIN
     Dosage: 10 MILLIGRAM, QD (TBL 10 MG 1X1 (QD))
     Route: 048
  3. METFORMIN\SITAGLIPTIN [Suspect]
     Active Substance: METFORMIN\SITAGLIPTIN
     Indication: Product used for unknown indication
     Dosage: 2 DOSAGE FORM, QD (TBL 50/1000 MG 2X1, AFTER MEALS)
     Route: 048
  4. METFORMIN\SITAGLIPTIN [Suspect]
     Active Substance: METFORMIN\SITAGLIPTIN
     Dosage: 2 DOSAGE FORM, QD (CONTINUE TO FULL DOSE (2X1 TBL).)
     Route: 048
  5. METFORMIN\SITAGLIPTIN [Suspect]
     Active Substance: METFORMIN\SITAGLIPTIN
     Dosage: 1 DOSAGE FORM, QD (REDUCED THE DOSE TO 1 TBL.)
     Route: 048
  6. ALPRAZOLAM [Suspect]
     Active Substance: ALPRAZOLAM
     Indication: Product used for unknown indication
     Route: 065
  7. METFORMIN [Suspect]
     Active Substance: METFORMIN HYDROCHLORIDE
     Indication: Product used for unknown indication
     Dosage: 500 MILLIGRAM, QD
     Route: 065
  8. JANUVIA [Suspect]
     Active Substance: SITAGLIPTIN PHOSPHATE
     Indication: Product used for unknown indication
     Route: 048
  9. INDAPAMIDE\PERINDOPRIL ERBUMINE [Suspect]
     Active Substance: INDAPAMIDE\PERINDOPRIL ERBUMINE
     Indication: Product used for unknown indication
     Dosage: 1 DOSAGE FORM, QD
     Route: 048
  10. INDAPAMIDE\PERINDOPRIL [Suspect]
     Active Substance: INDAPAMIDE\PERINDOPRIL
     Indication: Product used for unknown indication
     Dosage: 1 DOSAGE FORM, QD (4 / 1.25 MG 1X1)
     Route: 065

REACTIONS (14)
  - Blood creatinine abnormal [Unknown]
  - Chest discomfort [Unknown]
  - Blood cholesterol abnormal [Unknown]
  - Body mass index abnormal [Unknown]
  - Blood triglycerides abnormal [Unknown]
  - Weight abnormal [Unknown]
  - Hypertension [Unknown]
  - Diabetes mellitus inadequate control [Recovered/Resolved]
  - Blood thyroid stimulating hormone abnormal [Unknown]
  - Head injury [Unknown]
  - Haemorrhagic stroke [Unknown]
  - Low density lipoprotein abnormal [Unknown]
  - Weight decreased [Unknown]
  - High density lipoprotein abnormal [Unknown]
